FAERS Safety Report 14717558 (Version 1)
Quarter: 2018Q2

REPORT INFORMATION
  Report Type: Spontaneous
  Country: US (occurrence: US)
  Receive Date: 20180404
  Receipt Date: 20180404
  Transmission Date: 20180711
  Serious: No
  Sender: FDA-Public Use
  Company Number: US-SA-2018SA012574

PATIENT
  Age: 34 Year
  Sex: Female
  Weight: 82.5 kg

DRUGS (4)
  1. ALOVEX GEL [Concomitant]
     Indication: PRURITUS
     Dosage: 2-4 TIMES PER DAY
     Route: 065
     Dates: start: 20170329
  2. DUPIXENT [Suspect]
     Active Substance: DUPILUMAB
     Indication: DERMATITIS ATOPIC
     Route: 058
     Dates: start: 20170908, end: 20171201
  3. EUCERIN CREME [Concomitant]
     Indication: DERMATITIS ATOPIC
     Dosage: 1-2 TIMES DAILY
     Route: 065
     Dates: start: 20170310, end: 20171220
  4. DESONIDE. [Concomitant]
     Active Substance: DESONIDE
     Indication: DERMATITIS ATOPIC
     Route: 065
     Dates: start: 20161028, end: 20171130

REACTIONS (10)
  - Swelling face [Recovering/Resolving]
  - Conjunctivitis [Unknown]
  - Eye swelling [Recovering/Resolving]
  - Blepharitis [Recovering/Resolving]
  - Skin exfoliation [Recovering/Resolving]
  - Eye allergy [Unknown]
  - Ectropion [Unknown]
  - Dermatitis [Unknown]
  - Oral discomfort [Recovering/Resolving]
  - Eye discharge [Recovering/Resolving]
